FAERS Safety Report 5033122-5 (Version None)
Quarter: 2006Q2

REPORT INFORMATION
  Report Type: 
  Country: None (occurrence: None)
  Receive Date: 20060505
  Receipt Date: 20050928
  Transmission Date: 20061013
  Serious: Yes (Hospitalization, Other)
  Sender: FDA-Public Use
  Company Number: PHEH2005US10528

PATIENT
  Age: 47 Year
  Sex: Female
  Weight: 60.8 kg

DRUGS (4)
  1. DIOVAN HCT [Suspect]
     Dosage: 80/12.5 MG, UNK
     Dates: start: 20050712, end: 20050816
  2. TOPROL-XL [Concomitant]
  3. ESTRADIOL [Concomitant]
  4. RELPAX (ELETRIPTAN HYDROBROMIDE) [Concomitant]

REACTIONS (3)
  - ABDOMINAL PAIN UPPER [None]
  - BLOOD CHOLESTEROL INCREASED [None]
  - PANCREATITIS ACUTE [None]
